FAERS Safety Report 9364283 (Version 2)
Quarter: 2013Q3

REPORT INFORMATION
  Report Type: Spontaneous
  Country: US (occurrence: None)
  Receive Date: 20130619
  Receipt Date: 20130705
  Transmission Date: 20140515
  Serious: Yes (Other)
  Sender: FDA-Public Use
  Company Number: JPI-P-033026

PATIENT
  Age: 51 Year
  Sex: Female
  Weight: 70.31 kg

DRUGS (10)
  1. XYREM [Suspect]
     Indication: NARCOLEPSY
     Dosage: 4.5 GM (2.25 GM, 2 IN 1 D)
     Route: 048
     Dates: start: 20070501
  2. OXYCODONE- ACETAMINOPHEN (TABLETS) [Concomitant]
  3. AZITHROMYCIN (TABLETS) [Concomitant]
  4. CETIRIZINE HCL (UNKNOWN) [Concomitant]
  5. CYCLOBENZAPRINE (TABLETS) [Concomitant]
  6. LEVOTHYROXINE [Suspect]
  7. METHYLPHENIDATE [Suspect]
  8. NORTRIPTYLINE [Suspect]
  9. RISEDRONATE SODIUM (UNKNOWN) [Suspect]
  10. VENLAFAXINE [Suspect]

REACTIONS (13)
  - Breast cancer [None]
  - Pain in extremity [None]
  - Paraesthesia [None]
  - Neuropathy peripheral [None]
  - Myalgia [None]
  - Myositis [None]
  - Dyskinesia [None]
  - Hypothyroidism [None]
  - Hypercholesterolaemia [None]
  - Osteoporosis [None]
  - Congenital neuropathy [None]
  - Neuropathy peripheral [None]
  - Eustachian tube disorder [None]
